FAERS Safety Report 8808788 (Version 1)
Quarter: 2012Q4

REPORT INFORMATION
  Report Type: 
  Country: US (occurrence: US)
  Receive Date: 20120926
  Receipt Date: 20120926
  Transmission Date: 20130627
  Serious: Yes (Other)
  Sender: FDA-Public Use
  Company Number: US-PFIZER INC-2012232689

PATIENT
  Age: 62 Year
  Sex: Female
  Weight: 94 kg

DRUGS (1)
  1. LEVOXYL [Suspect]
     Dosage: 125 ug, 1x/day
     Route: 048

REACTIONS (1)
  - Type 2 diabetes mellitus [Unknown]
